FAERS Safety Report 4537523-0 (Version None)
Quarter: 2004Q4

REPORT INFORMATION
  Report Type: 
  Country: None (occurrence: None)
  Receive Date: 20041216
  Receipt Date: 20040722
  Transmission Date: 20050328
  Serious: Yes (Other)
  Sender: FDA-Public Use
  Company Number: HQWYE399123JUL04

PATIENT
  Age: 48 Year
  Sex: Female
  Weight: 96.25 kg

DRUGS (4)
  1. EFFEXOR XR [Suspect]
     Indication: DEPRESSION
     Dosage: 75 MG 3X PER 1 DAY, ORAL
     Route: 048
     Dates: start: 20040101, end: 20040101
  2. EFFEXOR XR [Suspect]
     Dosage: 150 MG 3X PER 1 DAY, ORAL
     Route: 048
     Dates: start: 20040101, end: 20040101
  3. EFFEXOR XR [Suspect]
     Dosage: 150 MG 1X PER 1 DAY, ORAL
     Route: 048
     Dates: start: 20040101, end: 20040101
  4. EFFEXOR XR [Suspect]
     Dosage: 150 MG 1X PER 1 DAY, ORAL
     Route: 048
     Dates: start: 20041003

REACTIONS (11)
  - BALANCE DISORDER [None]
  - BLOOD PRESSURE INCREASED [None]
  - CONTUSION [None]
  - DECREASED APPETITE [None]
  - DIZZINESS [None]
  - EXOPHTHALMOS [None]
  - HEADACHE [None]
  - INFLUENZA LIKE ILLNESS [None]
  - WEIGHT DECREASED [None]
  - WEIGHT INCREASED [None]
  - WOUND INFECTION [None]
